FAERS Safety Report 9519671 (Version 1)
Quarter: 2013Q1

REPORT INFORMATION
  Report Type: Spontaneous
  Country: US (occurrence: None)
  Receive Date: 20130305
  Receipt Date: 20130305
  Transmission Date: 20140127
  Serious: Yes (Other)
  Sender: FDA-Public Use
  Company Number: 163-21880-12010893

PATIENT
  Age: 59 Year
  Sex: Male
  Weight: 71.49 kg

DRUGS (9)
  1. REVLIMID [Suspect]
     Indication: PLASMA CELL MYELOMA
     Dosage: 5 MG, DAILY, PO
     Route: 048
     Dates: start: 20110815, end: 201112
  2. FENTANYL (FENTANYL) (POULTICE OR PATCH) [Concomitant]
  3. ZOFRAN (ONDANSETRON HYDROCHLORIDE) (UNKNOWN) [Concomitant]
  4. OXYCODONE (OXYCODONE) (UNKNOWN) (OXYCODONE) [Concomitant]
  5. ANTIBIOTICS (ANTIBIOTICS) (UNKNOWN) [Concomitant]
  6. DILAUDID (HYDROMORPHONE HYDROCHLORIDE) (UNKNOWN) [Concomitant]
  7. PROCRIT [Concomitant]
  8. ZOMETA (ZOLEDRONIC ACID) (UNKNOWN) [Concomitant]
  9. AREDIA (PAMIDRONATE DISODIUM) (UNKNOWN) [Concomitant]

REACTIONS (2)
  - Thrombocytopenia [None]
  - Plasma cell myeloma [None]
